FAERS Safety Report 4268605-9 (Version None)
Quarter: 2004Q1

REPORT INFORMATION
  Report Type: 
  Country: None (occurrence: None)
  Receive Date: 20040109
  Receipt Date: 20040109
  Transmission Date: 20041129
  Serious: Yes (Life-Threatening, Hospitalization, Disabling)
  Sender: FDA-Public Use
  Company Number: None

PATIENT
  Sex: Female

DRUGS (1)
  1. ACTOS [Suspect]
     Indication: DIABETES MELLITUS NON-INSULIN-DEPENDENT
     Dosage: 1 PILL DAILY/ ABOUT 1 1/2 YEARS

REACTIONS (6)
  - CHEST DISCOMFORT [None]
  - DEAFNESS [None]
  - DYSPNOEA [None]
  - GLAUCOMA [None]
  - OEDEMA PERIPHERAL [None]
  - WEIGHT INCREASED [None]
